FAERS Safety Report 9637126 (Version 1)
Quarter: 2013Q4

REPORT INFORMATION
  Report Type: Spontaneous
  Country: US (occurrence: US)
  Receive Date: 20131022
  Receipt Date: 20131022
  Transmission Date: 20140711
  Serious: Yes (Other)
  Sender: FDA-Public Use
  Company Number: US-JNJFOC-20131007093

PATIENT
  Sex: Female

DRUGS (7)
  1. DURAGESIC [Suspect]
     Indication: PAIN
     Route: 062
     Dates: end: 201302
  2. DURAGESIC [Suspect]
     Indication: PAIN
     Route: 062
  3. TYLENOL COLD [Suspect]
     Indication: PRODUCT USED FOR UNKNOWN INDICATION
     Route: 065
     Dates: start: 2013, end: 2013
  4. MS CONTIN [Concomitant]
     Indication: PRODUCT USED FOR UNKNOWN INDICATION
     Route: 065
  5. MORPHINE [Concomitant]
     Indication: BREAKTHROUGH PAIN
     Route: 048
     Dates: start: 2011, end: 201302
  6. LEVOTHYROXINE [Concomitant]
     Indication: HYPOTHYROIDISM
     Route: 048
  7. INDERAL [Concomitant]
     Indication: HYPERTENSION
     Route: 048

REACTIONS (5)
  - Hepatic atrophy [Not Recovered/Not Resolved]
  - Liver disorder [Recovering/Resolving]
  - Gallbladder disorder [Not Recovered/Not Resolved]
  - Lung infection [Not Recovered/Not Resolved]
  - Pain [Recovered/Resolved]
